FAERS Safety Report 6461952-1 (Version None)
Quarter: 2009Q4

REPORT INFORMATION
  Report Type: 
  Country: None (occurrence: None)
  Receive Date: 20091123
  Receipt Date: 20091117
  Transmission Date: 20100525
  Serious: Yes (Hospitalization, Other)
  Sender: FDA-Public Use
  Company Number: 09-001868

PATIENT
  Age: 44 Year
  Sex: Female
  Weight: 48.1 kg

DRUGS (4)
  1. FEMCON FE [Suspect]
     Indication: CONTRACEPTION
     Dosage: 0.4MG/35MCG, QD, ORAL
     Route: 048
     Dates: start: 20090809, end: 20091031
  2. MULTIVITAMIN [Concomitant]
  3. VIVELLE-DOT [Concomitant]
  4. ORAL CONTRACEPTIVE NOS (ORAL CONTRACEPTIVE NOS) [Concomitant]

REACTIONS (8)
  - FACIAL BONES FRACTURE [None]
  - FALL [None]
  - FEELING HOT [None]
  - PAIN [None]
  - PAIN IN EXTREMITY [None]
  - PERIORBITAL HAEMATOMA [None]
  - SWELLING FACE [None]
  - SYNCOPE [None]
